FAERS Safety Report 5051463-2 (Version None)
Quarter: 2006Q3

REPORT INFORMATION
  Report Type: 
  Country: None (occurrence: None)
  Receive Date: 20060714
  Receipt Date: 20060710
  Transmission Date: 20061208
  Serious: Yes (Death)
  Sender: FDA-Public Use
  Company Number: 2006AC01269

PATIENT
  Age: 22524 Day
  Sex: Male

DRUGS (4)
  1. CRESTOR [Suspect]
     Route: 048
     Dates: start: 20060302
  2. PRAVASTATIN [Concomitant]
     Indication: ANGINA PECTORIS
     Dates: end: 20060302
  3. TILDIEM [Concomitant]
     Indication: ANGINA PECTORIS
     Dates: start: 19940101
  4. ACETYL CARDIO [Concomitant]
     Indication: ANGINA PECTORIS
     Dates: start: 19940101

REACTIONS (2)
  - CARDIAC FAILURE ACUTE [None]
  - SUDDEN DEATH [None]
